FAERS Safety Report 13852416 (Version 1)
Quarter: 2017Q3

REPORT INFORMATION
  Report Type: Spontaneous
  Country: US (occurrence: US)
  Receive Date: 20170809
  Receipt Date: 20170809
  Transmission Date: 20171127
  Serious: Yes (Other)
  Sender: FDA-Public Use
  Company Number: US-ROCHE-631735

PATIENT
  Age: 68 Year
  Sex: Female
  Weight: 58.1 kg

DRUGS (2)
  1. BONIVA [Suspect]
     Active Substance: IBANDRONATE SODIUM
     Indication: OSTEOPOROSIS
     Dosage: LAST DOSE IN MAY 2009
     Route: 048
     Dates: start: 20090106, end: 20090506
  2. VITAMIN [Concomitant]
     Active Substance: VITAMINS
     Route: 065

REACTIONS (5)
  - Hypoaesthesia [Not Recovered/Not Resolved]
  - Rash [Unknown]
  - Lip swelling [Unknown]
  - Muscle spasms [Unknown]
  - Balance disorder [Unknown]

NARRATIVE: CASE EVENT DATE: 20090511
